FAERS Safety Report 24318400 (Version 2)
Quarter: 2024Q4

REPORT INFORMATION
  Report Type: Spontaneous
  Country: DE (occurrence: DE)
  Receive Date: 20240913
  Receipt Date: 20241009
  Transmission Date: 20250115
  Serious: Yes (Other)
  Sender: SANDOZ
  Company Number: None

PATIENT
  Age: 69 Year
  Sex: Female

DRUGS (2)
  1. ARIPIPRAZOLE [Suspect]
     Active Substance: ARIPIPRAZOLE
     Indication: Depression
     Dosage: UNK
     Route: 065
  2. QUETIAPINE [Suspect]
     Active Substance: QUETIAPINE
     Indication: Depression
     Dosage: UNK
     Route: 065

REACTIONS (9)
  - Delirium [Recovered/Resolved]
  - Concussion [Recovered/Resolved]
  - Bone pain [Recovered/Resolved]
  - Coordination abnormal [Recovered/Resolved]
  - Fall [Recovered/Resolved]
  - Fall [Recovered/Resolved]
  - Contusion [Recovered/Resolved]
  - Pain [Recovered/Resolved]
  - Product use in unapproved indication [Unknown]
